FAERS Safety Report 5902794-2 (Version None)
Quarter: 2008Q3

REPORT INFORMATION
  Report Type: 
  Country: None (occurrence: None)
  Receive Date: 20080929
  Receipt Date: 20080929
  Transmission Date: 20090109
  Serious: Yes (Other)
  Sender: FDA-Public Use
  Company Number: None

PATIENT
  Age: 28 Year
  Sex: Female
  Weight: 128.8216 kg

DRUGS (1)
  1. SULFAMETHOXAZOLE AND TRIMETHOPRIM [Suspect]
     Indication: SINUSITIS
     Dosage: ONE TABLET TWICE DAILY PO
     Route: 048
     Dates: start: 20080903, end: 20080904

REACTIONS (11)
  - DRUG HYPERSENSITIVITY [None]
  - DYSPNOEA [None]
  - GINGIVAL BLEEDING [None]
  - GINGIVAL PAIN [None]
  - INSOMNIA [None]
  - MUSCULOSKELETAL STIFFNESS [None]
  - NO THERAPEUTIC RESPONSE [None]
  - ORAL PAIN [None]
  - SKIN DISCOLOURATION [None]
  - TOOTHACHE [None]
  - TREMOR [None]
